FAERS Safety Report 4576139-7 (Version None)
Quarter: 2005Q1

REPORT INFORMATION
  Report Type: 
  Country: None (occurrence: None)
  Receive Date: 20050204
  Receipt Date: 20050119
  Transmission Date: 20050727
  Serious: Yes (Other)
  Sender: FDA-Public Use
  Company Number: 8008562

PATIENT
  Age: 45 Year
  Sex: Female

DRUGS (3)
  1. KEPPRA [Suspect]
  2. CARBAMAZEPINE [Suspect]
     Dosage: TEMPORAL LOBE EPILEPSY
  3. PRIMIDONE [Suspect]

REACTIONS (1)
  - BRADYCARDIA [None]
